FAERS Safety Report 11629749 (Version 1)
Quarter: 2015Q4

REPORT INFORMATION
  Report Type: Spontaneous
  Country: CN (occurrence: CN)
  Receive Date: 20151014
  Receipt Date: 20151014
  Transmission Date: 20160304
  Serious: Yes (Other)
  Sender: FDA-Public Use
  Company Number: PHHY2015CN121924

PATIENT
  Sex: Male

DRUGS (1)
  1. PREDNISONE. [Suspect]
     Active Substance: PREDNISONE
     Indication: PANCREATITIS ACUTE
     Route: 065

REACTIONS (2)
  - Herpes simplex [Recovered/Resolved]
  - Gastritis erosive [Recovered/Resolved]
